FAERS Safety Report 6731078-8 (Version None)
Quarter: 2010Q2

REPORT INFORMATION
  Report Type: 
  Country: None (occurrence: None)
  Receive Date: 20100518
  Receipt Date: 20100506
  Transmission Date: 20101027
  Serious: Yes (Other)
  Sender: FDA-Public Use
  Company Number: US-WYE-H15048610

PATIENT
  Sex: Female

DRUGS (1)
  1. EFFEXOR [Suspect]
     Dosage: UNKNOWN

REACTIONS (3)
  - ANAPHYLACTIC REACTION [None]
  - PHARYNGEAL OEDEMA [None]
  - SKIN EXFOLIATION [None]
